FAERS Safety Report 7245647-2 (Version None)
Quarter: 2011Q1

REPORT INFORMATION
  Report Type: 
  Country: None (occurrence: None)
  Receive Date: 20110126
  Receipt Date: 20110117
  Transmission Date: 20110831
  Serious: Yes (Hospitalization)
  Sender: FDA-Public Use
  Company Number: US-ASTRAZENECA-2010SE26525

PATIENT
  Age: 52 Year
  Sex: Female

DRUGS (2)
  1. LISINOPRIL [Concomitant]
  2. NEXIUM [Suspect]
     Route: 048

REACTIONS (11)
  - EAR INFECTION [None]
  - PAIN [None]
  - DRUG DOSE OMISSION [None]
  - CHEST PAIN [None]
  - CHOLECYSTECTOMY [None]
  - SINUSITIS [None]
  - THERAPEUTIC RESPONSE UNEXPECTED [None]
  - BRONCHITIS [None]
  - PNEUMONIA [None]
  - PHARYNGITIS STREPTOCOCCAL [None]
  - GASTROOESOPHAGEAL REFLUX DISEASE [None]
